FAERS Safety Report 9798535 (Version 5)
Quarter: 2014Q1

REPORT INFORMATION
  Report Type: Spontaneous
  Country: IT (occurrence: None)
  Receive Date: 20131231
  Receipt Date: 20140218
  Transmission Date: 20141002
  Serious: Yes (Other)
  Sender: FDA-Public Use
  Company Number: AUR-APL-2013-09033

PATIENT
  Age: 24 Year
  Sex: Male

DRUGS (3)
  1. PAROXETINE [Suspect]
     Indication: PANIC ATTACK
     Dosage: 10 MG (10 MG, 1 IN 1 D), ORAL
     Route: 048
     Dates: start: 20130823, end: 20130828
  2. PAROXETINE [Suspect]
     Indication: DEPRESSION
     Dosage: 10 MG (10 MG, 1 IN 1 D), ORAL
     Route: 048
     Dates: start: 20130823, end: 20130828
  3. ALPRAZOLAM [Suspect]
     Indication: PANIC ATTACK
     Dosage: 15 GTT, 1 D, ORAL
     Route: 048
     Dates: start: 20130808, end: 20130828

REACTIONS (5)
  - Myalgia [None]
  - Tremor [None]
  - Diarrhoea [None]
  - Hot flush [None]
  - Heat stroke [None]
